FAERS Safety Report 5472639-6 (Version None)
Quarter: 2007Q4

REPORT INFORMATION
  Report Type: 
  Country: None (occurrence: None)
  Receive Date: 20071001
  Receipt Date: 20061211
  Transmission Date: 20080405
  Serious: Yes (Other)
  Sender: FDA-Public Use
  Company Number: US-ASTRAZENECA-2006UW17447

PATIENT
  Age: 84 Year
  Sex: Female

DRUGS (3)
  1. ARIMIDEX [Suspect]
     Route: 048
  2. HYPERTENSION MEDICATION [Concomitant]
  3. NATURAL SUPPLEMENT [Concomitant]
     Indication: HYPERCHOLESTEROLAEMIA

REACTIONS (5)
  - ALOPECIA [None]
  - BONE PAIN [None]
  - OSTEOPENIA [None]
  - OSTEOPOROSIS [None]
  - WEIGHT INCREASED [None]
